FAERS Safety Report 14033528 (Version 1)
Quarter: 2017Q4

REPORT INFORMATION
  Report Type: Spontaneous
  Country: CA (occurrence: CA)
  Receive Date: 20171003
  Receipt Date: 20171003
  Transmission Date: 20180321
  Serious: Yes (Other)
  Sender: FDA-Public Use
  Company Number: CA-JNJFOC-20170926675

PATIENT
  Sex: Male

DRUGS (1)
  1. RISPERDAL [Suspect]
     Active Substance: RISPERIDONE
     Indication: PRODUCT USED FOR UNKNOWN INDICATION
     Route: 048

REACTIONS (7)
  - Hypotension [Unknown]
  - Shoulder arthroplasty [Unknown]
  - Off label use [Unknown]
  - Incorrect dose administered [Unknown]
  - Dizziness [Unknown]
  - Gait disturbance [Unknown]
  - Fall [Unknown]
